FAERS Safety Report 5128939-2 (Version None)
Quarter: 2006Q4

REPORT INFORMATION
  Report Type: 
  Country: None (occurrence: None)
  Receive Date: 20061017
  Receipt Date: 20060929
  Transmission Date: 20070319
  Serious: Yes (Death)
  Sender: FDA-Public Use
  Company Number: PHBS2006JP15133

PATIENT
  Age: 52 Year
  Sex: Male

DRUGS (15)
  1. ZOMETA [Suspect]
     Indication: METASTASES TO BONE
     Dosage: 4 MG, ONCE/SINGLE
     Route: 041
     Dates: start: 20060726, end: 20060726
  2. ZOMETA [Suspect]
     Dosage: 4 MG, ONCE/SINGLE
     Route: 041
     Dates: start: 20060915, end: 20060915
  3. PARAPLATIN [Suspect]
     Indication: LUNG NEOPLASM MALIGNANT
     Dosage: 600 MG/DAY
     Route: 041
     Dates: start: 20060403, end: 20060809
  4. TAXOL [Suspect]
     Indication: LUNG NEOPLASM MALIGNANT
     Dosage: 120 MG/DAY
     Route: 041
     Dates: start: 20060403, end: 20060809
  5. MEROPEN [Suspect]
     Indication: PNEUMONIA
     Dosage: 1 G/DAY
     Route: 041
     Dates: start: 20050905, end: 20050915
  6. DUROTEP JANSSEN [Concomitant]
     Indication: CANCER PAIN
     Route: 062
     Dates: start: 20060610
  7. OPSO DAINIPPON [Concomitant]
     Indication: CANCER PAIN
     Dosage: 30 MG/DAY
     Route: 048
     Dates: start: 20060610
  8. LANDSEN [Concomitant]
     Route: 048
     Dates: start: 20060610, end: 20060921
  9. CEROCRAL [Concomitant]
     Route: 048
     Dates: start: 20060610, end: 20060921
  10. LANSOPRAZOLE [Concomitant]
     Route: 048
     Dates: start: 20060610, end: 20060921
  11. LORAZEPAM [Concomitant]
     Route: 048
     Dates: start: 20060610, end: 20060921
  12. RHYTHMY [Concomitant]
     Route: 048
     Dates: start: 20060610, end: 20060921
  13. VOLTAREN [Concomitant]
     Route: 048
     Dates: start: 20060610, end: 20060921
  14. MUCOSTA [Concomitant]
     Route: 048
     Dates: start: 20060610, end: 20060921
  15. URSO [Concomitant]
     Route: 048
     Dates: start: 20060610, end: 20060921

REACTIONS (12)
  - BODY TEMPERATURE INCREASED [None]
  - C-REACTIVE PROTEIN INCREASED [None]
  - CARDIO-RESPIRATORY ARREST [None]
  - CELL MARKER INCREASED [None]
  - DYSPNOEA [None]
  - HEART RATE DECREASED [None]
  - INTERSTITIAL LUNG DISEASE [None]
  - OXYGEN SATURATION DECREASED [None]
  - PANIC REACTION [None]
  - PCO2 DECREASED [None]
  - PO2 DECREASED [None]
  - WHITE BLOOD CELL COUNT INCREASED [None]
